FAERS Safety Report 5431116-9 (Version None)
Quarter: 2007Q3

REPORT INFORMATION
  Report Type: 
  Country: None (occurrence: None)
  Receive Date: 20070830
  Receipt Date: 20070322
  Transmission Date: 20080115
  Serious: No
  Sender: FDA-Public Use
  Company Number: A0640058A

PATIENT
  Age: 37 Year
  Sex: Male

DRUGS (2)
  1. WELLBUTRIN XL [Suspect]
     Indication: DEPRESSION
     Dosage: 450MG PER DAY
     Route: 048
     Dates: start: 20050710
  2. CYTOMEL [Concomitant]
     Indication: ANTIDEPRESSANT THERAPY
     Dosage: 12.5MCG PER DAY

REACTIONS (1)
  - DIARRHOEA [None]
